FAERS Safety Report 14257756 (Version 1)
Quarter: 2017Q4

REPORT INFORMATION
  Report Type: Report from Study
  Country: None (occurrence: US)
  Receive Date: 20171207
  Receipt Date: 20171207
  Transmission Date: 20180321
  Serious: Yes (Other)
  Sender: FDA-Public Use
  Company Number: US-ABBVIE-17K-163-2181141-00

PATIENT
  Age: 49 Year
  Sex: Female

DRUGS (3)
  1. HUMIRA [Suspect]
     Active Substance: ADALIMUMAB
     Route: 058
     Dates: start: 20171004, end: 2017
  2. HUMIRA [Suspect]
     Active Substance: ADALIMUMAB
     Indication: RHEUMATOID ARTHRITIS
     Route: 058
     Dates: end: 201603
  3. HUMIRA [Suspect]
     Active Substance: ADALIMUMAB
     Route: 058
     Dates: start: 20171108

REACTIONS (10)
  - Chalazion [Unknown]
  - Cognitive disorder [Unknown]
  - Influenza [Unknown]
  - Infection [Unknown]
  - Renal disorder [Unknown]
  - Loss of consciousness [Unknown]
  - Cerebral disorder [Unknown]
  - Rheumatoid arthritis [Unknown]
  - Concussion [Unknown]
  - Infection [Unknown]

NARRATIVE: CASE EVENT DATE: 2017
